FAERS Safety Report 7311466-1 (Version None)
Quarter: 2011Q1

REPORT INFORMATION
  Report Type: 
  Country: None (occurrence: None)
  Receive Date: 20110224
  Receipt Date: 20110216
  Transmission Date: 20110831
  Serious: Yes (Other)
  Sender: FDA-Public Use
  Company Number: TW-JNJFOC-20110205882

PATIENT
  Age: 23 Year
  Sex: Female

DRUGS (1)
  1. NICORETTE [Suspect]
     Indication: SMOKING CESSATION THERAPY
     Dosage: 10 MG (FREQUENCY UNSPECIFIED)
     Route: 055

REACTIONS (3)
  - DYSGEUSIA [None]
  - OVERDOSE [None]
  - NARCOLEPSY [None]
